FAERS Safety Report 25994143 (Version 1)
Quarter: 2025Q4

REPORT INFORMATION
  Report Type: Spontaneous
  Country: EU (occurrence: EU)
  Receive Date: 20251104
  Receipt Date: 20251104
  Transmission Date: 20260117
  Serious: Yes (Other)
  Sender: PHARMOBEDIENT CONSULTING, LLC
  Company Number: EU-Pharmobedient-000416

PATIENT
  Age: 4 Decade
  Sex: Male

DRUGS (7)
  1. MINOCYCLINE HYDROCHLORIDE [Suspect]
     Active Substance: MINOCYCLINE HYDROCHLORIDE
     Indication: Leprosy
  2. IBUPROFEN [Suspect]
     Active Substance: IBUPROFEN
     Indication: Product used for unknown indication
  3. PREDNISONE [Concomitant]
     Active Substance: PREDNISONE
     Indication: Acute febrile neutrophilic dermatosis
  4. CLOFAZIMINE [Concomitant]
     Active Substance: CLOFAZIMINE
     Indication: Leprosy
  5. CLARITHROMYCIN [Concomitant]
     Active Substance: CLARITHROMYCIN
     Indication: Leprosy
  6. THALIDOMIDE [Concomitant]
     Active Substance: THALIDOMIDE
     Indication: Leprosy
  7. PREDNISONE [Concomitant]
     Active Substance: PREDNISONE
     Indication: Leprosy

REACTIONS (2)
  - Photosensitivity reaction [Recovering/Resolving]
  - Dermatitis bullous [Unknown]
